FAERS Safety Report 7612053-8 (Version None)
Quarter: 2011Q3

REPORT INFORMATION
  Report Type: 
  Country: None (occurrence: None)
  Receive Date: 20110715
  Receipt Date: 20110706
  Transmission Date: 20111222
  Serious: Yes (Hospitalization, Other)
  Sender: FDA-Public Use
  Company Number: US-ABBOTT-11P-163-0837098-00

PATIENT
  Sex: Female

DRUGS (4)
  1. UNKNOWN THYROID MEDICATION [Concomitant]
     Indication: THYROID DISORDER
  2. VITAMIN D [Concomitant]
     Indication: VITAMIN SUPPLEMENTATION
  3. PREDNISONE [Concomitant]
     Indication: RHEUMATOID ARTHRITIS
     Dates: start: 20101201
  4. HUMIRA [Suspect]
     Indication: RHEUMATOID ARTHRITIS
     Dates: start: 20090101, end: 20100201

REACTIONS (6)
  - PREGNANCY [None]
  - CAESAREAN SECTION [None]
  - PROLONGED LABOUR [None]
  - PREMATURE RECOVERY FROM ANAESTHESIA [None]
  - MATERNAL EXPOSURE DURING PREGNANCY [None]
  - POSTPARTUM DEPRESSION [None]
